FAERS Safety Report 4380608-2 (Version None)
Quarter: 2004Q2

REPORT INFORMATION
  Report Type: 
  Country: None (occurrence: None)
  Receive Date: 20040618
  Receipt Date: 20040609
  Transmission Date: 20050107
  Serious: Yes (Hospitalization)
  Sender: FDA-Public Use
  Company Number: FR-GLAXOSMITHKLINE-B0335115A

PATIENT
  Age: 77 Year
  Sex: Female

DRUGS (3)
  1. ZANTAC [Suspect]
     Route: 065
     Dates: end: 20040520
  2. CLAFORAN [Suspect]
     Indication: MENINGITIS
     Route: 042
     Dates: start: 20040427, end: 20040521
  3. VANCOMYCIN [Concomitant]
     Indication: MENINGITIS
     Route: 042
     Dates: start: 20040510

REACTIONS (2)
  - LEUKOPENIA [None]
  - NEUTROPENIA [None]
